FAERS Safety Report 5302798-7 (Version None)
Quarter: 2007Q2

REPORT INFORMATION
  Report Type: 
  Country: None (occurrence: None)
  Receive Date: 20070419
  Receipt Date: 20070412
  Transmission Date: 20071010
  Serious: Yes (Life-Threatening, Disabling, Other)
  Sender: FDA-Public Use
  Company Number: US-MERCK-0704USA02449

PATIENT
  Sex: Male

DRUGS (2)
  1. JANUVIA [Suspect]
     Route: 048
     Dates: start: 20070101, end: 20070101
  2. DIGOXIN [Concomitant]
     Route: 065

REACTIONS (2)
  - CARDIAC ARREST [None]
  - THERAPEUTIC AGENT TOXICITY [None]
